FAERS Safety Report 17029750 (Version 1)
Quarter: 2019Q4

REPORT INFORMATION
  Report Type: Spontaneous
  Country: US (occurrence: US)
  Receive Date: 20191114
  Receipt Date: 20191114
  Transmission Date: 20200122
  Serious: No
  Sender: FDA-Public Use
  Company Number: US-AUROBINDO-AUR-APL-2019-052892

PATIENT
  Age: 61 Year
  Sex: Male
  Weight: 67.13 kg

DRUGS (1)
  1. MODAFINIL TABLETS USP 200MG [Suspect]
     Active Substance: MODAFINIL
     Indication: PRODUCT USED FOR UNKNOWN INDICATION
     Dosage: 200 MILLIGRAM, EVERY MORNING
     Route: 065
     Dates: start: 20190710

REACTIONS (9)
  - Abdominal discomfort [Unknown]
  - Cognitive disorder [Unknown]
  - Malaise [Unknown]
  - Suspected product contamination [Unknown]
  - Abdominal pain [Unknown]
  - Drug ineffective [Unknown]
  - Dizziness [Unknown]
  - Product substitution issue [Unknown]
  - Disorientation [Unknown]

NARRATIVE: CASE EVENT DATE: 20190710
